APPROVED DRUG PRODUCT: DAPTOMYCIN
Active Ingredient: DAPTOMYCIN
Strength: 350MG/VIAL
Dosage Form/Route: POWDER;INTRAVENOUS
Application: A212667 | Product #001 | TE Code: AP
Applicant: ACCORD HEALTHCARE INC
Approved: Jul 12, 2019 | RLD: No | RS: No | Type: RX